FAERS Safety Report 19586161 (Version 2)
Quarter: 2021Q3

REPORT INFORMATION
  Report Type: Spontaneous
  Country: NZ (occurrence: NZ)
  Receive Date: 20210720
  Receipt Date: 20210728
  Transmission Date: 20211014
  Serious: Yes (Hospitalization, Other)
  Sender: FDA-Public Use
  Company Number: NZ-SA-2021SA230576

PATIENT
  Sex: Male

DRUGS (6)
  1. LANTUS [Suspect]
     Active Substance: INSULIN GLARGINE
     Dosage: UNK
     Route: 065
     Dates: start: 2011
  2. PREDNISONE. [Concomitant]
     Active Substance: PREDNISONE
     Dosage: UNK
     Route: 065
  3. BENDROFLUAZIDE [Concomitant]
     Active Substance: BENDROFLUMETHIAZIDE
     Dosage: UNK
     Route: 065
  4. NOVORAPID [Concomitant]
     Active Substance: INSULIN ASPART
     Dosage: UNK
     Route: 065
     Dates: start: 2011
  5. PROTAPHANE [Concomitant]
     Active Substance: INSULIN HUMAN
     Dosage: UNK
     Route: 065
  6. FUROSEMIDE. [Concomitant]
     Active Substance: FUROSEMIDE
     Dosage: UNK
     Route: 065

REACTIONS (20)
  - Dyspnoea [Recovering/Resolving]
  - Weight decreased [Recovering/Resolving]
  - Hypoaesthesia [Recovering/Resolving]
  - Peripheral swelling [Recovering/Resolving]
  - Visual impairment [Recovering/Resolving]
  - Breath sounds abnormal [Recovering/Resolving]
  - Dysphonia [Recovering/Resolving]
  - Abdominal distension [Recovering/Resolving]
  - Pain [Recovering/Resolving]
  - Dysphagia [Recovering/Resolving]
  - Arthritis infective [Recovering/Resolving]
  - Abdominal abscess [Recovering/Resolving]
  - Productive cough [Recovering/Resolving]
  - Hypotonia [Recovering/Resolving]
  - Oxygen saturation decreased [Recovering/Resolving]
  - Gait disturbance [Recovering/Resolving]
  - Increased tendency to bruise [Recovering/Resolving]
  - Skin haemorrhage [Recovering/Resolving]
  - Memory impairment [Recovering/Resolving]
  - Choking [Recovering/Resolving]

NARRATIVE: CASE EVENT DATE: 2016
